FAERS Safety Report 7476225-8 (Version None)
Quarter: 2011Q2

REPORT INFORMATION
  Report Type: 
  Country: None (occurrence: None)
  Receive Date: 20110510
  Receipt Date: 20110510
  Transmission Date: 20111010
  Serious: Yes (Hospitalization)
  Sender: FDA-Public Use
  Company Number: None

PATIENT
  Sex: Male
  Weight: 95.2554 kg

DRUGS (1)
  1. SUTENT [Suspect]
     Indication: RENAL CANCER
     Dosage: 37.5MG DAILY PO
     Route: 048
     Dates: start: 20110104, end: 20110427

REACTIONS (2)
  - OESOPHAGEAL HAEMORRHAGE [None]
  - THROMBOTIC THROMBOCYTOPENIC PURPURA [None]
